FAERS Safety Report 25997383 (Version 2)
Quarter: 2025Q4

REPORT INFORMATION
  Report Type: Spontaneous
  Country: EU (occurrence: EU)
  Receive Date: 20251104
  Receipt Date: 20251216
  Transmission Date: 20260117
  Serious: Yes (Other)
  Sender: GE HEALTHCARE
  Company Number: None

PATIENT
  Age: 26 Year
  Sex: Female

DRUGS (2)
  1. VISIPAQUE [Interacting]
     Active Substance: IODIXANOL
     Indication: Pelvic vein embolisation
     Dosage: 70 ML, TOTAL
     Route: 042
     Dates: start: 20230428, end: 20230428
  2. LIPIODOL [Interacting]
     Active Substance: ETHIODIZED OIL
     Indication: Pelvic vein embolisation
     Dosage: 2.5 ML, QD
     Route: 042
     Dates: start: 20230428, end: 20230428

REACTIONS (2)
  - Drug interaction [Not Recovered/Not Resolved]
  - Hyperthyroidism [Not Recovered/Not Resolved]

NARRATIVE: CASE EVENT DATE: 20230428
